FAERS Safety Report 5869777-2 (Version None)
Quarter: 2008Q3

REPORT INFORMATION
  Report Type: 
  Country: None (occurrence: None)
  Receive Date: 20080902
  Receipt Date: 20080812
  Transmission Date: 20090109
  Serious: Yes (Hospitalization, Other)
  Sender: FDA-Public Use
  Company Number: 1000000682

PATIENT
  Sex: Female
  Weight: 2.27 kg

DRUGS (4)
  1. CITALOPRAM HYDROBROMIDE [Suspect]
     Indication: DEPRESSION
     Dosage: 40 MG,TRANSPLACENTAL
     Route: 064
  2. URSODIOL [Concomitant]
  3. ONDANSETRON [Concomitant]
  4. ZANTAC [Concomitant]

REACTIONS (12)
  - APGAR SCORE LOW [None]
  - AUTONOMIC NERVOUS SYSTEM IMBALANCE [None]
  - DRUG WITHDRAWAL SYNDROME NEONATAL [None]
  - HYPERTONIA NEONATAL [None]
  - INDUCED LABOUR [None]
  - MATERNAL DRUGS AFFECTING FOETUS [None]
  - METABOLIC ACIDOSIS [None]
  - NEONATAL DISORDER [None]
  - NEONATAL RESPIRATORY DISTRESS SYNDROME [None]
  - PREMATURE BABY [None]
  - SEPSIS NEONATAL [None]
  - TARDIVE DYSKINESIA [None]
